FAERS Safety Report 9955976 (Version 1)
Quarter: 2014Q1

REPORT INFORMATION
  Report Type: Report from Study
  Country: US (occurrence: US)
  Receive Date: 20140304
  Receipt Date: 20140304
  Transmission Date: 20141002
  Serious: No
  Sender: FDA-Public Use
  Company Number: US-ABBVIE-13P-163-1086703-00

PATIENT
  Age: 39 Year
  Sex: Female

DRUGS (6)
  1. HUMIRA [Suspect]
     Indication: PSORIATIC ARTHROPATHY
     Dates: start: 201301
  2. HYDROCODONE [Concomitant]
     Indication: PAIN
  3. METOPROLOL [Concomitant]
     Indication: BLOOD PRESSURE
  4. ATENOLOL [Concomitant]
     Indication: HEART RATE
  5. TRIAMTERENE [Concomitant]
     Indication: DIURETIC THERAPY
  6. DULCOLAX (BISACODYL) [Concomitant]
     Indication: CONSTIPATION
     Dosage: AS NEEDED

REACTIONS (2)
  - Hypoaesthesia [Not Recovered/Not Resolved]
  - Local swelling [Not Recovered/Not Resolved]
